FAERS Safety Report 4495896-1 (Version None)
Quarter: 2004Q4

REPORT INFORMATION
  Report Type: 
  Country: None (occurrence: None)
  Receive Date: 20041104
  Receipt Date: 20041028
  Transmission Date: 20050328
  Serious: No
  Sender: FDA-Public Use
  Company Number: MK200410-0296-1

PATIENT
  Age: 30 Year
  Sex: Female

DRUGS (1)
  1. I131 ORAL SOLUTION [Suspect]
     Indication: CARCINOMA
     Dosage: 147, 200, 204, 400MCI, 1

REACTIONS (2)
  - DACRYOSTENOSIS ACQUIRED [None]
  - LACRIMATION INCREASED [None]
